FAERS Safety Report 9034866 (Version 1)
Quarter: 2013Q1

REPORT INFORMATION
  Report Type: Spontaneous
  Country: SE (occurrence: SE)
  Receive Date: 20130128
  Receipt Date: 20130128
  Transmission Date: 20140127
  Serious: Yes (Other)
  Sender: FDA-Public Use
  Company Number: PHHY2013SE007262

PATIENT
  Sex: Male
  Weight: 41 kg

DRUGS (1)
  1. RITALIN UNO [Suspect]
     Indication: ATTENTION DEFICIT/HYPERACTIVITY DISORDER
     Dosage: 40 MG UNK
     Dates: start: 201202

REACTIONS (2)
  - Body temperature increased [Not Recovered/Not Resolved]
  - Fatigue [Not Recovered/Not Resolved]
